FAERS Safety Report 9246905 (Version 2)
Quarter: 2013Q2

REPORT INFORMATION
  Report Type: Report from Study
  Country: US (occurrence: US)
  Receive Date: 20130422
  Receipt Date: 20130429
  Transmission Date: 20140414
  Serious: Yes (Hospitalization)
  Sender: FDA-Public Use
  Company Number: US-VIIV HEALTHCARE LIMITED-B0885409A

PATIENT
  Sex: Female
  Weight: 120.5 kg

DRUGS (15)
  1. SELZENTRY [Suspect]
     Indication: HIV INFECTION
     Dosage: 150MG TWICE PER DAY
     Route: 048
     Dates: start: 20120413
  2. IRON SUPPLEMENT [Concomitant]
  3. BACTRIM DS [Concomitant]
  4. PREZISTA [Concomitant]
     Dosage: 600MG TWICE PER DAY
  5. NORVIR [Concomitant]
     Dosage: 100MG TWICE PER DAY
  6. VITAMIN D [Concomitant]
  7. VASOTEC [Concomitant]
     Dosage: 20MG AT NIGHT
  8. METHOCARBAMOL [Concomitant]
     Dosage: 750MG AS REQUIRED
  9. LOPRESSOR [Concomitant]
     Dosage: 50MG PER DAY
  10. CLARITIN [Concomitant]
     Dosage: 10MG AS REQUIRED
  11. TRAZODONE [Concomitant]
     Dosage: 300MG AT NIGHT
  12. CELEXA [Concomitant]
     Dosage: 20MG AT NIGHT
  13. IMITREX [Concomitant]
     Dosage: 100MG AS REQUIRED
  14. ISENTRESS [Concomitant]
     Dosage: 400MG TWICE PER DAY
  15. TRUVADA [Concomitant]

REACTIONS (2)
  - Menorrhagia [Recovered/Resolved]
  - Pelvic adhesions [Recovered/Resolved]
